FAERS Safety Report 20151558 (Version 1)
Quarter: 2021Q4

REPORT INFORMATION
  Report Type: Report from Study
  Country: CA (occurrence: None)
  Receive Date: 20211206
  Receipt Date: 20211206
  Transmission Date: 20220303
  Serious: Yes (Other)
  Sender: FDA-Public Use
  Company Number: 2021A361093

PATIENT
  Age: 67 Year
  Sex: Female

DRUGS (9)
  1. SYMBICORT [Suspect]
     Active Substance: BUDESONIDE\FORMOTEROL FUMARATE DIHYDRATE
     Indication: Product used for unknown indication
     Dosage: 2 PUFF(S), BID, 200/6
     Route: 055
  2. FLOVENT [Suspect]
     Active Substance: FLUTICASONE PROPIONATE
     Indication: Asthma
     Dosage: UNK
     Route: 065
  3. MOMETASONE FUROATE [Suspect]
     Active Substance: MOMETASONE FUROATE
     Indication: Product used for unknown indication
     Dosage: 1 PUFF(S), BID, 200MG
     Route: 065
  4. NUCALA [Suspect]
     Active Substance: MEPOLIZUMAB
     Indication: Asthma
     Dosage: 100 MG, Z
     Route: 042
     Dates: start: 20180515
  5. NUCALA [Suspect]
     Active Substance: MEPOLIZUMAB
     Indication: Asthma
     Dosage: 100 MG, Z
     Route: 042
     Dates: start: 20180515
  6. PREDNISONE [Suspect]
     Active Substance: PREDNISONE
     Indication: Asthma
     Dosage: UNKNOWN
     Route: 065
  7. ALBUTEROL SULFATE [Suspect]
     Active Substance: ALBUTEROL SULFATE
     Indication: Asthma
     Dosage: UNK, AS NEEDED
     Route: 065
     Dates: start: 1989
  8. SINGULAIR [Suspect]
     Active Substance: MONTELUKAST SODIUM
     Indication: Product used for unknown indication
     Dosage: 10 MG DIE10.0MG UNKNOWN
     Route: 065
  9. SPIRIVA [Suspect]
     Active Substance: TIOTROPIUM BROMIDE MONOHYDRATE
     Indication: Product used for unknown indication
     Dosage: 2 PUFF(S) DIE2.0DF UNKNOWN
     Route: 065

REACTIONS (13)
  - Asthma [Not Recovered/Not Resolved]
  - Bacterial infection [Not Recovered/Not Resolved]
  - Dyspnoea [Not Recovered/Not Resolved]
  - Loss of personal independence in daily activities [Not Recovered/Not Resolved]
  - Pneumonia [Not Recovered/Not Resolved]
  - Type 2 diabetes mellitus [Not Recovered/Not Resolved]
  - Wheezing [Unknown]
  - Pneumonia [Not Recovered/Not Resolved]
  - Asthma [Unknown]
  - Loss of personal independence in daily activities [Unknown]
  - Dyspnoea [Recovering/Resolving]
  - Drug ineffective [Not Recovered/Not Resolved]
  - Drug ineffective [Unknown]

NARRATIVE: CASE EVENT DATE: 20171201
